FAERS Safety Report 6503052-8 (Version None)
Quarter: 2009Q4

REPORT INFORMATION
  Report Type: 
  Country: None (occurrence: None)
  Receive Date: 20091127
  Receipt Date: 20090820
  Transmission Date: 20100525
  Serious: Yes (Other)
  Sender: FDA-Public Use
  Company Number: WAES 0908USA03741

PATIENT
  Sex: Female

DRUGS (1)
  1. FOSAMAX [Suspect]
     Dosage: PO
     Route: 048
     Dates: start: 19990401

REACTIONS (3)
  - EXOSTOSIS [None]
  - OSTEOMYELITIS [None]
  - OSTEONECROSIS [None]
